FAERS Safety Report 6962168-2 (Version None)
Quarter: 2010Q3

REPORT INFORMATION
  Report Type: 
  Country: None (occurrence: None)
  Receive Date: 20100901
  Receipt Date: 20100901
  Transmission Date: 20110219
  Serious: No
  Sender: FDA-Public Use
  Company Number: None

PATIENT
  Age: 14 Month
  Sex: Female
  Weight: 10.4327 kg

DRUGS (1)
  1. ACETAMINOPHEN [Suspect]

REACTIONS (2)
  - PRODUCT COLOUR ISSUE [None]
  - SCREAMING [None]
